FAERS Safety Report 6758195-0 (Version None)
Quarter: 2010Q2

REPORT INFORMATION
  Report Type: 
  Country: None (occurrence: None)
  Receive Date: 20100524
  Receipt Date: 20100402
  Transmission Date: 20101027
  Serious: No
  Sender: FDA-Public Use
  Company Number: 009808

PATIENT
  Sex: Female
  Weight: 79.8 kg

DRUGS (6)
  1. CIMZIA [Suspect]
     Indication: COLITIS ULCERATIVE
     Dosage: SUBCUTANEOUS
     Route: 058
     Dates: start: 20091101
  2. PURINETHOL [Concomitant]
  3. SYNTHROID [Concomitant]
  4. MESALAMINE [Concomitant]
  5. CENTRUM [Concomitant]
  6. VITAMIN B12 NOS [Concomitant]

REACTIONS (5)
  - ERYTHEMA [None]
  - OFF LABEL USE [None]
  - SKIN DISORDER [None]
  - SWELLING [None]
  - URTICARIA [None]
